FAERS Safety Report 5479394-4 (Version None)
Quarter: 2007Q4

REPORT INFORMATION
  Report Type: 
  Country: None (occurrence: None)
  Receive Date: 20071008
  Receipt Date: 20071001
  Transmission Date: 20080405
  Serious: Yes (Other)
  Sender: FDA-Public Use
  Company Number: ES-AVENTIS-200718433GDDC

PATIENT
  Age: 91 Year
  Sex: Female

DRUGS (4)
  1. FLAGYL [Suspect]
     Dosage: DOSE: 0.5 G/100 ML BAG
     Route: 042
     Dates: start: 20070608, end: 20070612
  2. CIPROFLOXACIN [Suspect]
     Route: 042
     Dates: start: 20070607, end: 20070608
  3. CIPROFLOXACIN [Suspect]
     Route: 042
     Dates: start: 20070608, end: 20070612
  4. CIPROFLOXACIN HCL [Concomitant]
     Route: 042
     Dates: start: 20070607, end: 20070608

REACTIONS (5)
  - AGGRESSION [None]
  - DISORIENTATION [None]
  - MACROGLOSSIA [None]
  - RESTLESSNESS [None]
  - TONGUE OEDEMA [None]
